FAERS Safety Report 26130076 (Version 1)
Quarter: 2025Q4

REPORT INFORMATION
  Report Type: Spontaneous
  Country: US (occurrence: US)
  Receive Date: 20251208
  Receipt Date: 20251208
  Transmission Date: 20260117
  Serious: No
  Sender: ELI LILLY AND COMPANY
  Company Number: US-ELI_LILLY_AND_COMPANY-US202511022246

PATIENT
  Age: 61 Year
  Sex: Female

DRUGS (16)
  1. ZEPBOUND [Suspect]
     Active Substance: TIRZEPATIDE
     Indication: Weight decreased
     Dosage: 10 MG, UNKNOWN
     Route: 058
     Dates: end: 202403
  2. ZEPBOUND [Suspect]
     Active Substance: TIRZEPATIDE
     Indication: Weight decreased
     Dosage: 10 MG, UNKNOWN
     Route: 058
     Dates: end: 202403
  3. ZEPBOUND [Suspect]
     Active Substance: TIRZEPATIDE
     Indication: Weight decreased
     Dosage: 10 MG, UNKNOWN
     Route: 058
     Dates: end: 202403
  4. ZEPBOUND [Suspect]
     Active Substance: TIRZEPATIDE
     Indication: Weight decreased
     Dosage: 10 MG, UNKNOWN
     Route: 058
     Dates: end: 202403
  5. ZEPBOUND [Suspect]
     Active Substance: TIRZEPATIDE
     Indication: Inflammation
  6. ZEPBOUND [Suspect]
     Active Substance: TIRZEPATIDE
     Indication: Inflammation
  7. ZEPBOUND [Suspect]
     Active Substance: TIRZEPATIDE
     Indication: Inflammation
  8. ZEPBOUND [Suspect]
     Active Substance: TIRZEPATIDE
     Indication: Inflammation
  9. ZEPBOUND [Suspect]
     Active Substance: TIRZEPATIDE
     Indication: Weight control
     Dosage: 2.5 MG, WEEKLY (1/W)
     Route: 058
     Dates: start: 20251111
  10. ZEPBOUND [Suspect]
     Active Substance: TIRZEPATIDE
     Indication: Weight control
     Dosage: 2.5 MG, WEEKLY (1/W)
     Route: 058
     Dates: start: 20251111
  11. ZEPBOUND [Suspect]
     Active Substance: TIRZEPATIDE
     Indication: Weight control
     Dosage: 2.5 MG, WEEKLY (1/W)
     Route: 058
     Dates: start: 20251111
  12. ZEPBOUND [Suspect]
     Active Substance: TIRZEPATIDE
     Indication: Weight control
     Dosage: 2.5 MG, WEEKLY (1/W)
     Route: 058
     Dates: start: 20251111
  13. ZEPBOUND [Suspect]
     Active Substance: TIRZEPATIDE
     Indication: Inflammation
  14. ZEPBOUND [Suspect]
     Active Substance: TIRZEPATIDE
     Indication: Inflammation
  15. ZEPBOUND [Suspect]
     Active Substance: TIRZEPATIDE
     Indication: Inflammation
  16. ZEPBOUND [Suspect]
     Active Substance: TIRZEPATIDE
     Indication: Inflammation

REACTIONS (9)
  - Rash macular [Recovering/Resolving]
  - Sneezing [Recovering/Resolving]
  - Pain [Unknown]
  - Blood potassium decreased [Unknown]
  - Vomiting [Unknown]
  - Abdominal pain upper [Recovered/Resolved]
  - Diarrhoea [Recovered/Resolved]
  - Hypersensitivity [Recovering/Resolving]
  - Swelling face [Recovered/Resolved]

NARRATIVE: CASE EVENT DATE: 20240301
